FAERS Safety Report 7768496-5 (Version None)
Quarter: 2011Q3

REPORT INFORMATION
  Report Type: 
  Country: None (occurrence: None)
  Receive Date: 20110922
  Receipt Date: 20110602
  Transmission Date: 20111222
  Serious: Yes (Hospitalization)
  Sender: FDA-Public Use
  Company Number: US-ASTRAZENECA-2011SE25794

PATIENT
  Age: 64 Year
  Sex: Female
  Weight: 104.3 kg

DRUGS (4)
  1. SEROQUEL [Suspect]
     Route: 048
     Dates: start: 20101201
  2. SEROQUEL [Suspect]
     Route: 048
     Dates: start: 20100201
  3. SEROQUEL [Suspect]
     Route: 048
     Dates: end: 20100801
  4. SEROQUEL [Suspect]
     Indication: SCHIZOPHRENIA
     Route: 048
     Dates: start: 19980101

REACTIONS (6)
  - THROMBOSIS [None]
  - AGITATION [None]
  - DEPRESSED MOOD [None]
  - SOMNOLENCE [None]
  - MOOD SWINGS [None]
  - LIVING IN RESIDENTIAL INSTITUTION [None]
